FAERS Safety Report 5499879-4 (Version None)
Quarter: 2007Q4

REPORT INFORMATION
  Report Type: 
  Country: None (occurrence: None)
  Receive Date: 20071026
  Receipt Date: 20071017
  Transmission Date: 20080405
  Serious: Yes (Hospitalization)
  Sender: FDA-Public Use
  Company Number: DE-ABBOTT-07P-062-0421041-00

PATIENT
  Sex: Female
  Weight: 22 kg

DRUGS (1)
  1. HUMIRA [Suspect]
     Indication: UVEITIS
     Route: 058
     Dates: start: 20070816, end: 20070927

REACTIONS (3)
  - APHTHOUS STOMATITIS [None]
  - PAIN [None]
  - PURULENT DISCHARGE [None]
